FAERS Safety Report 13449236 (Version 3)
Quarter: 2019Q1

REPORT INFORMATION
  Report Type: Spontaneous
  Country: HU (occurrence: HU)
  Receive Date: 20170417
  Receipt Date: 20190327
  Transmission Date: 20190417
  Serious: Yes (Other)
  Sender: FDA-Public Use
  Company Number: HU-PFIZER INC-2017158026

PATIENT
  Age: 40 Year
  Sex: Female

DRUGS (6)
  1. BISOPROLOL [Concomitant]
     Active Substance: BISOPROLOL
     Indication: HYPERTENSION
     Dosage: 2.5 MG 1X
  2. SUNITINIB MALATE. [Suspect]
     Active Substance: SUNITINIB MALATE
     Indication: RENAL CELL CARCINOMA
     Dosage: 50 MG, CYCLIC (DAILY, 4/2 WEEKS SCHEDULE)
     Dates: start: 20060222, end: 20080416
  3. APO-FAMOTIDINE [Concomitant]
     Active Substance: FAMOTIDINE
     Indication: HYPERTENSION
     Dosage: 40 MG, UNK
  4. METFORMIN [Concomitant]
     Active Substance: METFORMIN HYDROCHLORIDE
     Indication: TYPE 2 DIABETES MELLITUS
     Dosage: 3X1000 MG
  5. SORAFENIB [Suspect]
     Active Substance: SORAFENIB
     Indication: RENAL CELL CARCINOMA
     Dosage: UNK
     Dates: start: 20080504, end: 20080804
  6. VINBLASTIN [Suspect]
     Active Substance: VINBLASTINE
     Indication: RENAL CELL CARCINOMA
     Dosage: UNK
     Dates: start: 20080811, end: 20111121

REACTIONS (7)
  - Device breakage [Unknown]
  - Neoplasm progression [Recovered/Resolved]
  - Palmar-plantar erythrodysaesthesia syndrome [Unknown]
  - Fatigue [Unknown]
  - Influenza like illness [Unknown]
  - Diarrhoea [Unknown]
  - Nausea [Unknown]

NARRATIVE: CASE EVENT DATE: 200804
